FAERS Safety Report 7085797-7 (Version None)
Quarter: 2010Q4

REPORT INFORMATION
  Report Type: 
  Country: None (occurrence: None)
  Receive Date: 20101105
  Receipt Date: 20101025
  Transmission Date: 20110411
  Serious: Yes (Hospitalization, Other)
  Sender: FDA-Public Use
  Company Number: US-ENDO PHARMACEUTICALS INC.-OPIR20100040

PATIENT
  Sex: Male

DRUGS (2)
  1. OPANA [Suspect]
     Dosage: UNKNOWN
     Route: 065
  2. OXYCONTIN [Suspect]
     Dosage: UNKNOWN
     Route: 065

REACTIONS (3)
  - DRUG DEPENDENCE [None]
  - INAPPROPRIATE SCHEDULE OF DRUG ADMINISTRATION [None]
  - WITHDRAWAL SYNDROME [None]
